FAERS Safety Report 6887765-4 (Version None)
Quarter: 2010Q3

REPORT INFORMATION
  Report Type: 
  Country: None (occurrence: None)
  Receive Date: 20100730
  Receipt Date: 20100721
  Transmission Date: 20110219
  Serious: Yes (Life-Threatening)
  Sender: FDA-Public Use
  Company Number: CH-ROCHE-716745

PATIENT
  Age: 64 Year
  Sex: Female

DRUGS (14)
  1. HERCEPTIN [Suspect]
     Route: 042
     Dates: start: 20100506
  2. TAXOTERE [Suspect]
     Route: 042
     Dates: start: 20100422
  3. TAXOTERE [Suspect]
     Route: 042
     Dates: start: 20100628
  4. CYCLOPHOSPHAMIDE [Suspect]
     Route: 042
     Dates: start: 20100422
  5. CLOPIN ECO [Suspect]
     Route: 048
     Dates: start: 20100623
  6. CLOPIN ECO [Suspect]
     Dosage: DOSAGE INCREASED.
     Route: 048
     Dates: start: 20100628
  7. CLOPIN ECO [Suspect]
     Route: 048
     Dates: start: 20100701, end: 20100707
  8. REMERON [Suspect]
     Route: 048
  9. IMOVANE [Concomitant]
     Route: 048
     Dates: start: 20100622, end: 20100706
  10. DISTRANEURIN [Concomitant]
     Route: 048
     Dates: start: 20100623, end: 20100701
  11. DEXAMETHASONE TAB [Concomitant]
     Route: 048
     Dates: start: 20100629, end: 20100701
  12. ZOFRAN [Concomitant]
     Route: 048
     Dates: start: 20100629, end: 20100701
  13. LORAZEPAM [Concomitant]
     Route: 048
     Dates: start: 20100701
  14. HALDOL [Concomitant]
     Route: 048
     Dates: start: 20100706

REACTIONS (4)
  - AGRANULOCYTOSIS [None]
  - DEPRESSION [None]
  - NEUTROPENIA [None]
  - SUICIDE ATTEMPT [None]
